FAERS Safety Report 14305654 (Version 1)
Quarter: 2017Q4

REPORT INFORMATION
  Report Type: Spontaneous
  Country: JP (occurrence: JP)
  Receive Date: 20171219
  Receipt Date: 20171219
  Transmission Date: 20180321
  Serious: Yes (Other)
  Sender: FDA-Public Use
  Company Number: PHJP2017JP036541

PATIENT
  Age: 81 Year
  Sex: Male

DRUGS (2)
  1. LEUPLIN [Concomitant]
     Active Substance: LEUPROLIDE ACETATE
     Indication: PRODUCT USED FOR UNKNOWN INDICATION
     Dosage: UNK
     Route: 065
  2. ZOMETA [Suspect]
     Active Substance: ZOLEDRONIC ACID
     Indication: PROSTATE CANCER
     Dosage: 4 MG, UNK
     Route: 041
     Dates: start: 20140718, end: 20171121

REACTIONS (3)
  - Pain in jaw [Unknown]
  - Osteonecrosis of jaw [Not Recovered/Not Resolved]
  - Mastication disorder [Unknown]

NARRATIVE: CASE EVENT DATE: 20171205
